FAERS Safety Report 24300139 (Version 2)
Quarter: 2024Q3

REPORT INFORMATION
  Report Type: Report from Study
  Country: CN (occurrence: CN)
  Receive Date: 20240909
  Receipt Date: 20240911
  Transmission Date: 20241017
  Serious: Yes (Other)
  Sender: PFIZER
  Company Number: CN-PFIZER INC-PV202400116564

PATIENT
  Age: 56 Year
  Sex: Female

DRUGS (6)
  1. PACLITAXEL [Suspect]
     Active Substance: PACLITAXEL
     Indication: Gallbladder cancer stage IV
     Dosage: 4 CYCLES
     Dates: start: 20190619, end: 20190914
  2. PACLITAXEL [Suspect]
     Active Substance: PACLITAXEL
     Dosage: 2 CYCLES
     Dates: start: 20190914, end: 20191108
  3. GEMCITABINE [Suspect]
     Active Substance: GEMCITABINE
     Indication: Gallbladder cancer stage IV
     Dosage: 4 CYCLES
     Dates: start: 20190619, end: 20190914
  4. GEMCITABINE [Suspect]
     Active Substance: GEMCITABINE
     Dosage: 2 CYCLES
     Dates: start: 20190914, end: 20191108
  5. PEMBROLIZUMAB [Concomitant]
     Active Substance: PEMBROLIZUMAB
     Indication: Gallbladder cancer stage IV
     Dosage: 2 CYCLES
     Dates: start: 20190914, end: 20191108
  6. PEMBROLIZUMAB [Concomitant]
     Active Substance: PEMBROLIZUMAB
     Dosage: UNK, CYCLIC
     Dates: start: 20200517

REACTIONS (4)
  - Myelosuppression [Unknown]
  - Agranulocytosis [Unknown]
  - Venous thrombosis limb [Unknown]
  - Pyrexia [Unknown]

NARRATIVE: CASE EVENT DATE: 20190101
